FAERS Safety Report 11777182 (Version 1)
Quarter: 2015Q4

REPORT INFORMATION
  Report Type: Spontaneous
  Country: US (occurrence: US)
  Receive Date: 20151125
  Receipt Date: 20151125
  Transmission Date: 20160304
  Serious: No
  Sender: FDA-Public Use
  Company Number: US-PFIZER INC-2015389702

PATIENT
  Age: 76 Year
  Sex: Female

DRUGS (3)
  1. LYRICA [Suspect]
     Active Substance: PREGABALIN
     Indication: NEURALGIA
     Dosage: 25 OR 50 MG UNSURE, TAKING AT NIGHT, DAILY
  2. LYRICA [Suspect]
     Active Substance: PREGABALIN
     Dosage: 25 OR 50 MG UNSURE, 2X/DAY
  3. LYRICA [Suspect]
     Active Substance: PREGABALIN
     Dosage: 25 OR 50 MG UNSURE, THEN TOOK IT IN THE MORNING DAILY

REACTIONS (5)
  - Logorrhoea [Unknown]
  - Sleep disorder [Recovered/Resolved]
  - Dry mouth [Unknown]
  - Somnolence [Recovered/Resolved]
  - Anxiety [Recovering/Resolving]
